FAERS Safety Report 7857237-9 (Version None)
Quarter: 2011Q4

REPORT INFORMATION
  Report Type: 
  Country: None (occurrence: None)
  Receive Date: 20111027
  Receipt Date: 20111017
  Transmission Date: 20120403
  Serious: Yes (Hospitalization)
  Sender: FDA-Public Use
  Company Number: US-BIOGENIDEC-2011BI040126

PATIENT
  Age: 68 Year
  Sex: Male
  Weight: 68 kg

DRUGS (25)
  1. OXYCODONE HCL [Concomitant]
     Indication: PAIN
     Route: 048
     Dates: start: 20110621
  2. COUMADIN [Concomitant]
     Indication: DEEP VEIN THROMBOSIS
     Route: 048
     Dates: start: 20110621
  3. RITALIN [Concomitant]
     Indication: FATIGUE
     Route: 048
     Dates: start: 20071127
  4. POLYETHYLENE GLYCOL [Concomitant]
     Indication: CONSTIPATION
     Route: 048
     Dates: start: 20100308
  5. SENNA [Concomitant]
     Indication: CONSTIPATION
     Route: 048
     Dates: start: 20100305
  6. ALBUTEROL [Concomitant]
     Indication: BRONCHITIS
     Route: 055
     Dates: start: 20090623
  7. DOCUSATE [Concomitant]
     Indication: CONSTIPATION
     Route: 048
     Dates: start: 20090302
  8. CALCIUM CARBONATE [Concomitant]
     Indication: ANTACID THERAPY
     Route: 048
     Dates: start: 20100322
  9. ADVAIR DISKUS 100/50 [Concomitant]
     Route: 055
     Dates: start: 20101222
  10. CARVEDILOL [Concomitant]
     Indication: CARDIAC DISORDER
     Route: 048
     Dates: start: 20070626
  11. TEMAZEPAM [Concomitant]
     Indication: SLEEP DISORDER
     Route: 048
     Dates: start: 20070626
  12. BISACODYL [Concomitant]
     Indication: CONSTIPATION
     Route: 048
     Dates: start: 20090302
  13. TYSABRI [Suspect]
     Indication: MULTIPLE SCLEROSIS
     Route: 042
     Dates: start: 20090828, end: 20110808
  14. GABAPENTIN [Concomitant]
     Indication: PAIN
     Route: 048
     Dates: start: 20070628
  15. CITALOPRAM HYDROBROMIDE [Concomitant]
     Indication: DEPRESSION
     Route: 048
     Dates: start: 20070626
  16. VITAMIN D [Concomitant]
     Indication: OSTEOPOROSIS
     Route: 048
     Dates: start: 20100121
  17. NIACIN [Concomitant]
     Indication: BLOOD CHOLESTEROL
     Route: 048
     Dates: start: 20100127
  18. SIMVASTATIN [Concomitant]
     Indication: BLOOD CHOLESTEROL
     Route: 048
     Dates: start: 20070626
  19. TOPIRAMATE [Concomitant]
     Indication: PAIN
     Route: 048
     Dates: start: 20110425
  20. BENAZEPRIL HYDROCHLORIDE [Concomitant]
     Indication: HYPERTENSION
     Route: 048
     Dates: start: 20070626
  21. OMEPRAZOLE [Concomitant]
     Indication: GASTROOESOPHAGEAL REFLUX DISEASE
     Route: 048
     Dates: start: 20071127
  22. BACLOFEN [Concomitant]
     Indication: MUSCLE SPASTICITY
     Route: 048
     Dates: start: 20080206
  23. TAMSULOSIN HCL [Concomitant]
     Indication: PROSTATOMEGALY
     Route: 048
     Dates: start: 20070626
  24. ADVAIR DISKUS 100/50 [Concomitant]
     Indication: ASTHMA
     Route: 055
     Dates: start: 20101222
  25. CARVEDILOL [Concomitant]
     Indication: BLOOD PRESSURE
     Route: 048
     Dates: start: 20070626

REACTIONS (5)
  - ENCEPHALOPATHY [None]
  - PNEUMONIA [None]
  - RESPIRATORY FAILURE [None]
  - DEEP VEIN THROMBOSIS [None]
  - SEPSIS [None]
